FAERS Safety Report 7096467-3 (Version None)
Quarter: 2010Q4

REPORT INFORMATION
  Report Type: 
  Country: None (occurrence: None)
  Receive Date: 20101110
  Receipt Date: 20101110
  Transmission Date: 20110411
  Serious: Yes (Hospitalization)
  Sender: FDA-Public Use
  Company Number: None

PATIENT
  Age: 76 Year
  Sex: Female
  Weight: 77.1115 kg

DRUGS (1)
  1. FOSAMAX [Suspect]
     Indication: OSTEOPOROSIS
     Dosage: 1 TABLET DAILY PO
     Route: 048
     Dates: start: 19880109, end: 20090622

REACTIONS (3)
  - DECUBITUS ULCER [None]
  - FEMUR FRACTURE [None]
  - OSTEOMYELITIS [None]
